FAERS Safety Report 5668534-X (Version None)
Quarter: 2008Q1

REPORT INFORMATION
  Report Type: 
  Country: None (occurrence: None)
  Receive Date: 20080315
  Receipt Date: 20080229
  Transmission Date: 20080703
  Serious: No
  Sender: FDA-Public Use
  Company Number: US-ABBOTT-08P-163-0440511-00

PATIENT
  Sex: Female
  Weight: 64.468 kg

DRUGS (7)
  1. HUMIRA [Suspect]
     Indication: RHEUMATOID ARTHRITIS
     Route: 058
     Dates: start: 20050901, end: 20071001
  2. HUMIRA [Suspect]
     Route: 058
     Dates: start: 20071220
  3. RISEDRONATE SODIUM [Concomitant]
     Indication: OSTEOPOROSIS
  4. LEVOTHYROXINE SODIUM [Concomitant]
     Indication: DRUG USE FOR UNKNOWN INDICATION
  5. CONDROITON SULFATE [Concomitant]
     Indication: RHEUMATOID ARTHRITIS
  6. OTC SUPPLEMENTS, NOT OTHERWISE NAMED [Concomitant]
     Indication: RHEUMATOID ARTHRITIS
  7. TETANUS SHOT [Concomitant]
     Indication: DRUG USE FOR UNKNOWN INDICATION
     Route: 030

REACTIONS (1)
  - STAPHYLOCOCCAL INFECTION [None]
